FAERS Safety Report 5986244-6 (Version None)
Quarter: 2008Q4

REPORT INFORMATION
  Report Type: 
  Country: None (occurrence: None)
  Receive Date: 20081209
  Receipt Date: 20081203
  Transmission Date: 20090506
  Serious: Yes (Death, Other)
  Sender: FDA-Public Use
  Company Number: JP-BRISTOL-MYERS SQUIBB COMPANY-14430565

PATIENT
  Age: 53 Year
  Sex: Male

DRUGS (6)
  1. REYATAZ [Suspect]
     Indication: HIV INFECTION
     Route: 048
     Dates: start: 20071201
  2. NORVIR [Suspect]
     Indication: HIV INFECTION
     Route: 048
     Dates: start: 20071201
  3. TRUVADA [Suspect]
     Indication: HIV INFECTION
     Route: 048
     Dates: start: 20071201
  4. AMBISOME [Concomitant]
     Route: 042
     Dates: start: 20070501
  5. FLUCONAZOLE [Concomitant]
     Dates: start: 20070101
  6. ITRACONAZOLE [Concomitant]
     Dates: start: 20080101

REACTIONS (4)
  - ELECTROLYTE IMBALANCE [None]
  - INFECTION [None]
  - LIVER DISORDER [None]
  - MENINGITIS CRYPTOCOCCAL [None]
